FAERS Safety Report 21994175 (Version 2)
Quarter: 2023Q1

REPORT INFORMATION
  Report Type: Spontaneous
  Country: US (occurrence: US)
  Receive Date: 20230215
  Receipt Date: 20230301
  Transmission Date: 20230417
  Serious: No
  Sender: FDA-Public Use
  Company Number: US-TEVA-2023-US-2856204

PATIENT
  Age: 50 Year
  Sex: Male

DRUGS (4)
  1. COPAXONE [Suspect]
     Active Substance: GLATIRAMER ACETATE
     Indication: Product used for unknown indication
     Dosage: FORM STRENGTH: UNKNOWN
     Route: 065
  2. COPAXONE [Suspect]
     Active Substance: GLATIRAMER ACETATE
  3. GLATIRAMER ACETATE [Suspect]
     Active Substance: GLATIRAMER ACETATE
     Indication: Product used for unknown indication
     Dosage: FORM STRENGTH: UNKNOWN
     Route: 065
  4. GLATIRAMER ACETATE [Suspect]
     Active Substance: GLATIRAMER ACETATE

REACTIONS (3)
  - Illness [Unknown]
  - Feeling abnormal [Unknown]
  - Insurance issue [Unknown]

NARRATIVE: CASE EVENT DATE: 20230101
